FAERS Safety Report 16429892 (Version 2)
Quarter: 2019Q3

REPORT INFORMATION
  Report Type: Spontaneous
  Country: DE (occurrence: DE)
  Receive Date: 20190614
  Receipt Date: 20190710
  Transmission Date: 20191004
  Serious: Yes (Congenital Anomaly, Other)
  Sender: FDA-Public Use
  Company Number: DE-009507513-1906DEU001658

PATIENT
  Age: 1 Day
  Sex: Female
  Weight: 2.2 kg

DRUGS (1)
  1. ZEPATIER [Suspect]
     Active Substance: ELBASVIR\GRAZOPREVIR
     Dosage: ONCE DAILY (1-0-0) (QAM)
     Route: 064
     Dates: start: 20181228, end: 20190125

REACTIONS (5)
  - Alpha 1 foetoprotein amniotic fluid increased [Unknown]
  - Low birth weight baby [Unknown]
  - Premature baby [Unknown]
  - Foetal exposure during pregnancy [Recovered/Resolved]
  - Microcephaly [Unknown]

NARRATIVE: CASE EVENT DATE: 20190227
